FAERS Safety Report 7651347-7 (Version None)
Quarter: 2011Q3

REPORT INFORMATION
  Report Type: 
  Country: None (occurrence: None)
  Receive Date: 20110802
  Receipt Date: 20110719
  Transmission Date: 20111222
  Serious: Yes (Hospitalization, Other)
  Sender: FDA-Public Use
  Company Number: PHHY2011AR65702

PATIENT
  Sex: Female

DRUGS (1)
  1. DIOVAN [Suspect]
     Indication: HYPERTENSION
     Dosage: 1 DF, DAILY (160 MG)

REACTIONS (5)
  - WOUND [None]
  - HYPERTENSION [None]
  - HEART VALVE STENOSIS [None]
  - THROMBOSIS [None]
  - WOUND COMPLICATION [None]
